FAERS Safety Report 22739541 (Version 2)
Quarter: 2025Q2

REPORT INFORMATION
  Report Type: Spontaneous
  Country: FR (occurrence: FR)
  Receive Date: 20230722
  Receipt Date: 20250515
  Transmission Date: 20250717
  Serious: Yes (Hospitalization, Other)
  Sender: NOVARTIS
  Company Number: None

PATIENT
  Age: 69 Year
  Sex: Male
  Weight: 70 kg

DRUGS (4)
  1. CIPROFLOXACIN [Suspect]
     Active Substance: CIPROFLOXACIN
     Indication: Pseudomonas infection
     Dosage: 1500 MG, QD (750 MG, BID ORAL USE)
     Route: 048
     Dates: start: 20230327, end: 20230530
  2. SIGNIFOR [Suspect]
     Active Substance: PASIREOTIDE DIASPARTATE
     Indication: Gastrointestinal haemorrhage
     Dosage: 60 MG, 28D
     Route: 030
     Dates: start: 20221125
  3. CEFTAZIDIME [Suspect]
     Active Substance: CEFTAZIDIME
     Indication: Pseudomonas infection
     Dosage: 6 G, QD (3 G, BID ORAL USE)
     Route: 048
     Dates: start: 20230327, end: 20230530
  4. SIVEXTRO [Suspect]
     Active Substance: TEDIZOLID PHOSPHATE
     Indication: Corynebacterium infection
     Dosage: 200 MG, QD
     Route: 048
     Dates: start: 20230217, end: 20230530

REACTIONS (1)
  - Cholestatic liver injury [Recovering/Resolving]

NARRATIVE: CASE EVENT DATE: 20230530
